FAERS Safety Report 20953548 (Version 1)
Quarter: 2022Q2

REPORT INFORMATION
  Report Type: Spontaneous
  Country: FR (occurrence: FR)
  Receive Date: 20220613
  Receipt Date: 20220613
  Transmission Date: 20220721
  Serious: Yes (Other)
  Sender: FDA-Public Use
  Company Number: FR-GW PHARMA-202110FRGW04806

PATIENT

DRUGS (9)
  1. CANNABIDIOL [Suspect]
     Active Substance: CANNABIDIOL
     Indication: Severe myoclonic epilepsy of infancy
     Dosage: 10 MG/KG/DAY, 350 MILLIGRAM, BID
     Route: 048
     Dates: start: 20210302, end: 20210428
  2. CANNABIDIOL [Suspect]
     Active Substance: CANNABIDIOL
     Indication: Gene mutation
     Dosage: 11.42 MG/KG/DAY, 400 MILLIGRAM, BID
     Route: 048
     Dates: start: 20210429, end: 2021
  3. CANNABIDIOL [Suspect]
     Active Substance: CANNABIDIOL
     Dosage: 10 MG/KG/DAY, 350 MILLIGRAM, BID
     Route: 048
     Dates: start: 2021, end: 202107
  4. VALPROATE SODIUM [Concomitant]
     Active Substance: VALPROATE SODIUM
     Indication: Product used for unknown indication
     Dosage: 750 MILLIGRAM, QD (500 MG IN THE MORNING AND 250 MG IN THE EVENING)
     Route: 065
  5. ZONEGRAN [Concomitant]
     Active Substance: ZONISAMIDE
     Indication: Product used for unknown indication
     Dosage: 125 MILLIGRAM, QD (50 MG IN THE MORNING AND 75 MG IN THE EVENING)
     Route: 065
  6. CLOBAZAM [Concomitant]
     Active Substance: CLOBAZAM
     Indication: Product used for unknown indication
     Dosage: 15 MILLIGRAM, QD (5 MG IN THE MORNING AND 10 MG IN THE EVENING)
     Route: 065
  7. DIACOMIT [Concomitant]
     Active Substance: STIRIPENTOL
     Indication: Product used for unknown indication
     Dosage: 625 MILLIGRAM, QD, (250 MG IN THE MORNING AND 375 MG IN THE EVENING)
     Route: 065
  8. POLYETHYLENE GLYCOLS [Concomitant]
     Active Substance: POLYETHYLENE GLYCOLS
     Indication: Product used for unknown indication
     Dosage: 5.9 GRAM
     Route: 065
  9. CHOLECALCIFEROL [Concomitant]
     Active Substance: CHOLECALCIFEROL
     Indication: Product used for unknown indication
     Dosage: 100000 INTERNATIONAL UNIT, EVERY 3 MONTHS
     Route: 065

REACTIONS (6)
  - Hepatic cytolysis [Recovered/Resolved]
  - Alanine aminotransferase increased [Recovered/Resolved]
  - Decreased appetite [Recovered/Resolved]
  - Diarrhoea [Recovered/Resolved]
  - Drug ineffective [Unknown]
  - Product use complaint [Unknown]

NARRATIVE: CASE EVENT DATE: 20210101
